FAERS Safety Report 9727561 (Version 2)
Quarter: 2013Q4

REPORT INFORMATION
  Report Type: Spontaneous
  Country: PL (occurrence: PL)
  Receive Date: 20131203
  Receipt Date: 20131212
  Transmission Date: 20140711
  Serious: Yes (Death)
  Sender: FDA-Public Use
  Company Number: PL-BAXTER-2013BAX047280

PATIENT
  Age: 55 Year
  Sex: Male

DRUGS (3)
  1. DIANEAL PD4 (GLUKOZA 1,36%) ZESTAW DO DIALIZY OTRZEWNOWEJ [Suspect]
     Indication: PERITONEAL DIALYSIS
     Route: 033
     Dates: end: 20131122
  2. DIANEAL PD4 (GLUKOZA 2,27%) ZESTAW DO DIALIZY OTRZEWNOWEJ [Suspect]
     Indication: PERITONEAL DIALYSIS
     Route: 033
     Dates: end: 20131122
  3. DIANEAL PD4 (GLUKOZA 1,36%) ZESTAW DO DIALIZY OTRZEWNOWEJ [Suspect]
     Indication: PERITONEAL DIALYSIS
     Route: 033
     Dates: end: 20131122

REACTIONS (1)
  - Pneumonia [Fatal]
